FAERS Safety Report 8077391-6 (Version None)
Quarter: 2012Q1

REPORT INFORMATION
  Report Type: 
  Country: None (occurrence: None)
  Receive Date: 20120127
  Receipt Date: 20120120
  Transmission Date: 20120608
  Serious: Yes (Hospitalization)
  Sender: FDA-Public Use
  Company Number: BE-ABBOTT-11P-013-0704152-00

PATIENT
  Sex: Male
  Weight: 86 kg

DRUGS (6)
  1. SINTROM [Concomitant]
     Indication: ATRIAL FIBRILLATION
     Dates: start: 20110930
  2. METHOTREXATE [Concomitant]
     Dosage: 15 MG/WEEK
     Dates: start: 20110930
  3. MEDROL [Concomitant]
     Dosage: 4 MG/DAY
     Dates: start: 20110930
  4. METHOTREXATE [Concomitant]
     Indication: ARTHRITIS
     Dosage: 20MG/WEEK
  5. HUMIRA [Suspect]
     Indication: PSORIATIC ARTHROPATHY
     Dates: start: 20090213
  6. MEDROL [Concomitant]
     Indication: ARTHRITIS
     Dosage: 2MG/DAY

REACTIONS (1)
  - ATRIAL FIBRILLATION [None]
